FAERS Safety Report 8174250-5 (Version None)
Quarter: 2012Q1

REPORT INFORMATION
  Report Type: 
  Country: None (occurrence: None)
  Receive Date: 20120224
  Receipt Date: 20120206
  Transmission Date: 20120608
  Serious: Yes (Hospitalization)
  Sender: FDA-Public Use
  Company Number: 2012AP000388

PATIENT
  Age: 65 Year
  Sex: Male

DRUGS (5)
  1. FENOFIBRATE [Concomitant]
  2. ROSIGLITAZONE MALEATE AND METFORMIN HCL [Suspect]
     Indication: TYPE 2 DIABETES MELLITUS
  3. ASPIRIN [Suspect]
     Indication: PRODUCT USED FOR UNKNOWN INDICATION
     Dosage: 300 MG;QD
  4. ATENOLOL [Concomitant]
  5. ENALAPRIL MALEATE [Suspect]
     Indication: PRODUCT USED FOR UNKNOWN INDICATION
     Dosage: 40 MG;QD

REACTIONS (9)
  - RENAL FAILURE ACUTE [None]
  - HYPOVOLAEMIA [None]
  - ABDOMINAL PAIN UPPER [None]
  - BLOOD GLUCOSE INCREASED [None]
  - GENERAL PHYSICAL HEALTH DETERIORATION [None]
  - DEPRESSED LEVEL OF CONSCIOUSNESS [None]
  - LACTIC ACIDOSIS [None]
  - CARDIAC ARREST [None]
  - TACHYPNOEA [None]
